FAERS Safety Report 8929929 (Version 1)
Quarter: 2012Q4

REPORT INFORMATION
  Report Type: 
  Country: ES (occurrence: ES)
  Receive Date: 20121128
  Receipt Date: 20121128
  Transmission Date: 20130627
  Serious: Yes (Death, Other)
  Sender: FDA-Public Use
  Company Number: PHHY2012ES107609

PATIENT
  Sex: Male

DRUGS (5)
  1. FLUDARABINE [Suspect]
     Dosage: 150 mg/m2, UNK
  2. MELPHALAN (MELPHALAN) [Suspect]
     Dosage: 140 mg/m2, UNK
  3. ATG RABBIT [Suspect]
     Dosage: 12.5 mg/kg, UNK
  4. CICLOSPORIN [Concomitant]
     Indication: TRANSPLANT REJECTION
     Dosage: 2.5 mg/kg, every 12 hours
  5. CICLOSPORIN [Concomitant]
     Dosage: 2.5 mg/kg, Q12H

REACTIONS (11)
  - Combined immunodeficiency [Fatal]
  - Pneumocystis jiroveci pneumonia [Fatal]
  - Lung infection [Fatal]
  - Pyrexia [Fatal]
  - Lung infiltration [Fatal]
  - Lymphocytic infiltration [Fatal]
  - Blood immunoglobulin E increased [Unknown]
  - Lymphadenopathy [Unknown]
  - Hepatosplenomegaly [Unknown]
  - Respiratory distress [Unknown]
  - Hypoxia [Unknown]
